FAERS Safety Report 21738917 (Version 2)
Quarter: 2022Q4

REPORT INFORMATION
  Report Type: Spontaneous
  Country: US (occurrence: US)
  Receive Date: 20221216
  Receipt Date: 20221224
  Transmission Date: 20230113
  Serious: Yes (Hospitalization, Other)
  Sender: FDA-Public Use
  Company Number: US-MLMSERVICE-20221125-3941799-1

PATIENT
  Age: 74 Year
  Sex: Male

DRUGS (1)
  1. METHOTREXATE [Suspect]
     Active Substance: METHOTREXATE
     Indication: Diffuse large B-cell lymphoma
     Dosage: UNK
     Route: 065

REACTIONS (5)
  - Toxicity to various agents [Recovering/Resolving]
  - Renal tubular injury [Recovering/Resolving]
  - Acute respiratory failure [Recovering/Resolving]
  - Nephropathy toxic [Recovering/Resolving]
  - Renal failure [Recovering/Resolving]
